FAERS Safety Report 19487208 (Version 1)
Quarter: 2021Q3

REPORT INFORMATION
  Report Type: Other
  Country: AU (occurrence: AU)
  Receive Date: 20210702
  Receipt Date: 20210702
  Transmission Date: 20211014
  Serious: Yes (Other)
  Sender: FDA-Public Use
  Company Number: AU-COLLEGIUM PHARMACEUTICAL, INC.-2021CGM00479

PATIENT
  Age: 72 Year
  Sex: Female

DRUGS (11)
  1. DULOXETINE. [Concomitant]
     Active Substance: DULOXETINE
  2. ATORVASTATIN [Concomitant]
     Active Substance: ATORVASTATIN
  3. SOLIFENACIN [Concomitant]
     Active Substance: SOLIFENACIN
  4. TAPENTADOL [Suspect]
     Active Substance: TAPENTADOL
     Indication: POSTOPERATIVE ANALGESIA
     Dosage: 50 MG
     Dates: start: 20171120, end: 20171120
  5. JANUMET [Concomitant]
     Active Substance: METFORMIN HYDROCHLORIDE\SITAGLIPTIN PHOSPHATE
  6. GABAPENTIN. [Concomitant]
     Active Substance: GABAPENTIN
  7. MOXONIDINE [Concomitant]
     Active Substance: MOXONIDINE
  8. METOPROLOL. [Concomitant]
     Active Substance: METOPROLOL
  9. ALL OTHER THERAPEUTIC PRODUCTS [Concomitant]
     Active Substance: UNSPECIFIED INGREDIENT
  10. ROPIVACAINE. [Concomitant]
     Active Substance: ROPIVACAINE HYDROCHLORIDE
  11. GLIBENCLAMIDE [Concomitant]
     Active Substance: GLYBURIDE

REACTIONS (6)
  - Fatigue [Recovered/Resolved]
  - Dysstasia [Recovered/Resolved]
  - Hallucination [Recovered/Resolved]
  - Alanine aminotransferase increased [Recovered/Resolved]
  - Confusional state [Recovered/Resolved]
  - Gait disturbance [Recovered/Resolved]

NARRATIVE: CASE EVENT DATE: 20171121
